FAERS Safety Report 6252016-0 (Version None)
Quarter: 2009Q2

REPORT INFORMATION
  Report Type: 
  Country: None (occurrence: None)
  Receive Date: 20090629
  Receipt Date: 20090618
  Transmission Date: 20091009
  Serious: Yes (Other)
  Sender: FDA-Public Use
  Company Number: 1-18868645

PATIENT
  Age: 34 Year
  Sex: Male

DRUGS (1)
  1. IBUPROFEN (UNKNOWN MANUFACTURER) [Suspect]

REACTIONS (5)
  - COLONIC STENOSIS [None]
  - ENDOSCOPY LARGE BOWEL ABNORMAL [None]
  - EOSINOPHILIC COLITIS [None]
  - LARGE INTESTINAL ULCER [None]
  - OEDEMA MUCOSAL [None]
